FAERS Safety Report 15455273 (Version 1)
Quarter: 2018Q3

REPORT INFORMATION
  Report Type: Spontaneous
  Country: US (occurrence: US)
  Receive Date: 20180925
  Receipt Date: 20180925
  Transmission Date: 20181010
  Serious: No
  Sender: FDA-Public Use
  Company Number: None

PATIENT
  Age: 67 Week
  Sex: Male

DRUGS (1)
  1. AMIKACIN 700MG FRESENIUS [Suspect]
     Active Substance: AMIKACIN
     Indication: BRONCHIECTASIS
     Route: 042
     Dates: start: 20180221, end: 20180917

REACTIONS (1)
  - Hypoacusis [None]

NARRATIVE: CASE EVENT DATE: 20180917
